FAERS Safety Report 15633186 (Version 3)
Quarter: 2018Q4

REPORT INFORMATION
  Report Type: Spontaneous
  Country: US (occurrence: US)
  Receive Date: 20181119
  Receipt Date: 20181212
  Transmission Date: 20190205
  Serious: No
  Sender: FDA-Public Use
  Company Number: US-TEVA-2018-US-977579

PATIENT
  Sex: Female

DRUGS (1)
  1. LORAZEPAM WATSON [Suspect]
     Active Substance: LORAZEPAM
     Route: 065

REACTIONS (5)
  - Drug ineffective [Unknown]
  - Adverse event [Unknown]
  - Product substitution issue [Unknown]
  - Malaise [Unknown]
  - Feeling abnormal [Unknown]
